FAERS Safety Report 10393693 (Version 1)
Quarter: 2014Q3

REPORT INFORMATION
  Report Type: Spontaneous
  Country: GB (occurrence: None)
  Receive Date: 20140815
  Receipt Date: 20140815
  Transmission Date: 20150326
  Serious: Yes (Hospitalization, Disabling, Other)
  Sender: FDA-Public Use
  Company Number: AUR-APL-2014-08602

PATIENT
  Age: 41 Year
  Sex: Female
  Weight: 76.2 kg

DRUGS (5)
  1. MIRTAZAPINE (MIRTAZAPINE) [Concomitant]
     Active Substance: MIRTAZAPINE
  2. MIDAZOLAM [Suspect]
     Active Substance: MIDAZOLAM\MIDAZOLAM HYDROCHLORIDE
     Indication: MENTAL DISORDER
     Route: 048
     Dates: start: 20120103, end: 20120106
  3. QUETIAPINE (QUETIAPINE) [Suspect]
     Active Substance: QUETIAPINE
     Indication: MENTAL DISORDER
     Route: 048
     Dates: start: 20120104, end: 20120106
  4. CITALOPRAM (CITALOPRAM) [Suspect]
     Active Substance: CITALOPRAM HYDROBROMIDE
     Indication: MENTAL DISORDER
     Route: 048
     Dates: start: 20120109, end: 20120313
  5. DULOXETINE (DULOXETINE) (DULOXETINE) [Suspect]
     Active Substance: DULOXETINE
     Indication: MENTAL DISORDER
     Route: 048
     Dates: start: 20120105, end: 20120106

REACTIONS (2)
  - Neuropathy peripheral [None]
  - Documented hypersensitivity to administered drug [None]
